FAERS Safety Report 13304741 (Version 1)
Quarter: 2017Q1

REPORT INFORMATION
  Report Type: Report from Study
  Country: None (occurrence: US)
  Receive Date: 20170308
  Receipt Date: 20170308
  Transmission Date: 20170428
  Serious: Yes (Hospitalization, Other)
  Sender: FDA-Public Use
  Company Number: US-ABBVIE-16K-163-1825341-00

PATIENT
  Age: 24 Year
  Sex: Female
  Weight: 49.94 kg

DRUGS (4)
  1. FLUOXETINE [Concomitant]
     Active Substance: FLUOXETINE HYDROCHLORIDE
     Indication: PRODUCT USED FOR UNKNOWN INDICATION
  2. ALBUTEROL. [Concomitant]
     Active Substance: ALBUTEROL
     Indication: ASTHMA
  3. HUMIRA [Suspect]
     Active Substance: ADALIMUMAB
     Indication: CROHN^S DISEASE
     Route: 058
     Dates: start: 20160527, end: 201611
  4. HUMIRA [Suspect]
     Active Substance: ADALIMUMAB
     Route: 058
     Dates: start: 201611, end: 201701

REACTIONS (7)
  - Crohn^s disease [Recovering/Resolving]
  - Drug effect incomplete [Recovering/Resolving]
  - Clostridium difficile colitis [Recovered/Resolved]
  - Cytomegalovirus gastrointestinal infection [Recovered/Resolved]
  - Hepatic steatosis [Recovered/Resolved]
  - Cystitis [Recovered/Resolved]
  - Crohn^s disease [Recovered/Resolved]

NARRATIVE: CASE EVENT DATE: 201611
